FAERS Safety Report 24814911 (Version 1)
Quarter: 2025Q1

REPORT INFORMATION
  Report Type: Spontaneous
  Country: US (occurrence: US)
  Receive Date: 20250107
  Receipt Date: 20250107
  Transmission Date: 20250409
  Serious: No
  Sender: BIOGEN
  Company Number: US-BIOGEN-2022BI01095244

PATIENT
  Age: 26 Year
  Sex: Female
  Weight: 81.72 kg

DRUGS (11)
  1. SPINRAZA [Suspect]
     Active Substance: NUSINERSEN
     Indication: Spinal muscular atrophy
     Dosage: ONCE EVERY 4 MONTHS
     Route: 050
  2. SPINRAZA [Suspect]
     Active Substance: NUSINERSEN
     Dosage: ONCE, 14 DAYS AFTER FIRST DOSE
     Route: 050
     Dates: start: 20240917, end: 20240917
  3. SPINRAZA [Suspect]
     Active Substance: NUSINERSEN
     Dosage: ONCE EVERY 4 MONTHS
     Route: 050
     Dates: start: 20240903
  4. SPINRAZA [Suspect]
     Active Substance: NUSINERSEN
     Dosage: LOADING DOSE
     Route: 050
  5. SPINRAZA [Suspect]
     Active Substance: NUSINERSEN
     Dosage: LOADING DOSE
     Route: 050
  6. SPINRAZA [Suspect]
     Active Substance: NUSINERSEN
     Dosage: LOADING DOSE
     Route: 050
  7. SPINRAZA [Suspect]
     Active Substance: NUSINERSEN
     Dosage: MAINTENANCE DOSE
     Route: 050
  8. MULTIVITAMINS TABLET [Concomitant]
     Indication: Product used for unknown indication
  9. DAYSEE [Concomitant]
     Active Substance: ETHINYL ESTRADIOL\LEVONORGESTREL
     Indication: Product used for unknown indication
     Route: 050
  10. SEMAGLUTIDE [Concomitant]
     Active Substance: SEMAGLUTIDE
     Indication: Weight decreased
     Route: 050
  11. PROTONIX [Concomitant]
     Active Substance: PANTOPRAZOLE SODIUM
     Indication: Product used for unknown indication
     Route: 050
     Dates: start: 20241105

REACTIONS (2)
  - Headache [Unknown]
  - Iron deficiency anaemia [Unknown]

NARRATIVE: CASE EVENT DATE: 20231201
